FAERS Safety Report 9142973 (Version 2)
Quarter: 2013Q2

REPORT INFORMATION
  Report Type: Spontaneous
  Country: US (occurrence: US)
  Receive Date: 20130306
  Receipt Date: 20130412
  Transmission Date: 20140414
  Serious: No
  Sender: FDA-Public Use
  Company Number: US-PFIZER INC-2013074744

PATIENT
  Age: 51 Year
  Sex: Female
  Weight: 47.62 kg

DRUGS (2)
  1. SUTENT [Suspect]
     Indication: PRIMITIVE NEUROECTODERMAL TUMOUR
     Dosage: 37.5 MG, UNK
     Route: 048
     Dates: start: 20130312
  2. SUTENT [Suspect]
     Indication: NEUROENDOCRINE CARCINOMA

REACTIONS (5)
  - Decreased appetite [Unknown]
  - Nausea [Unknown]
  - Fatigue [Unknown]
  - Dysgeusia [Unknown]
  - Diarrhoea [Unknown]
